FAERS Safety Report 6607669-1 (Version None)
Quarter: 2010Q1

REPORT INFORMATION
  Report Type: 
  Country: None (occurrence: None)
  Receive Date: 20100212
  Receipt Date: 20100108
  Transmission Date: 20100710
  Serious: No
  Sender: FDA-Public Use
  Company Number: 1000011200

PATIENT
  Age: 69 Year
  Sex: Female

DRUGS (7)
  1. SAVELLA [Suspect]
     Indication: FIBROMYALGIA
     Dosage: 12.5 MG (12.5 MG, 1 IN 1 D), ORAL; 12.5 MG (12.5 MG, 2 IN 1 D), ORAL
     Route: 048
     Dates: start: 20100104, end: 20100104
  2. SAVELLA [Suspect]
     Indication: FIBROMYALGIA
     Dosage: 12.5 MG (12.5 MG, 1 IN 1 D), ORAL; 12.5 MG (12.5 MG, 2 IN 1 D), ORAL
     Route: 048
     Dates: start: 20100105, end: 20100106
  3. SAVELLA [Suspect]
     Indication: FIBROMYALGIA
     Dosage: 25 MG (25 MG, 1 IN 1 D), ORAL
     Route: 048
     Dates: start: 20100107, end: 20100107
  4. MOBIC [Concomitant]
  5. DARVOCET [Concomitant]
  6. LORAZEPAM [Concomitant]
  7. NEXIUM [Concomitant]

REACTIONS (6)
  - ABNORMAL DREAMS [None]
  - DIARRHOEA [None]
  - DIZZINESS [None]
  - HEADACHE [None]
  - HYPERHIDROSIS [None]
  - NAUSEA [None]
